FAERS Safety Report 9410160 (Version 3)
Quarter: 2013Q3

REPORT INFORMATION
  Report Type: Report from Study
  Country: US (occurrence: US)
  Receive Date: 20130719
  Receipt Date: 20130924
  Transmission Date: 20140515
  Serious: Yes (Hospitalization)
  Sender: FDA-Public Use
  Company Number: US-ALEXION PHARMACEUTICALS INC.-A201301602

PATIENT
  Age: 3 Year
  Sex: Female
  Weight: 12.5 kg

DRUGS (15)
  1. SOLIRIS [Suspect]
     Indication: HAEMOLYTIC URAEMIC SYNDROME
     Dosage: 600 MG, SINGLE
     Route: 042
     Dates: start: 20130528, end: 20130528
  2. SOLIRIS [Suspect]
     Dosage: 300 MG, SINGLE
     Route: 042
     Dates: start: 20130605, end: 20130605
  3. SOLIRIS [Suspect]
     Dosage: 300 MG, SINGLE
     Route: 042
     Dates: start: 20130619, end: 20130619
  4. SOLIRIS [Suspect]
     Dosage: UNK, SINGLE
     Route: 042
     Dates: start: 20130718, end: 20130718
  5. SOLIRIS [Suspect]
     Dosage: UNK, SINGLE
     Route: 042
     Dates: start: 20130801, end: 20130801
  6. SOLIRIS [Suspect]
     Dosage: UNK
     Route: 042
     Dates: start: 20130815, end: 20130815
  7. PROTEIN SUPPLEMENTS [Concomitant]
     Indication: NUTRITIONAL SUPPLEMENTATION
     Dosage: 18 G, QD
     Route: 048
  8. DIPHENHYDRAMINE [Concomitant]
     Indication: PRURITUS
     Dosage: 50 MG, UNK
     Route: 042
  9. CALCIUM CARBONATE [Concomitant]
     Indication: SUPPLEMENTATION THERAPY
     Dosage: 12 ML, TID
     Route: 048
  10. EPINEPHRINE [Concomitant]
     Indication: PRODUCT USED FOR UNKNOWN INDICATION
     Dosage: 1 MG, UNK
     Route: 042
  11. HEPARIN [Concomitant]
     Indication: ANTICOAGULANT THERAPY
     Dosage: 50 UNITS, UNK
     Route: 042
  12. KAYEXALATE [Concomitant]
     Indication: BLOOD POTASSIUM INCREASED
     Dosage: 5 ML, QD
     Route: 048
  13. SODIUM CHLORIDE [Concomitant]
     Indication: ELECTROLYTE IMBALANCE
     Route: 042
  14. ALBUTEROL SULFATE [Concomitant]
     Indication: PRODUCT USED FOR UNKNOWN INDICATION
     Dosage: 0.5 ML, PRN, INHALATION
  15. AMLODIPINE [Concomitant]
     Indication: PRODUCT USED FOR UNKNOWN INDICATION
     Dosage: 3.5 MG, BID
     Route: 048

REACTIONS (1)
  - Device related sepsis [Not Recovered/Not Resolved]
